FAERS Safety Report 20345241 (Version 1)
Quarter: 2022Q1

REPORT INFORMATION
  Report Type: Spontaneous
  Country: US (occurrence: None)
  Receive Date: 20220114
  Receipt Date: 20220114
  Transmission Date: 20220423
  Serious: Yes (Hospitalization)
  Sender: FDA-Public Use
  Company Number: None

PATIENT
  Age: 71 Year
  Sex: Male
  Weight: 60.78 kg

DRUGS (7)
  1. HYCAMTIN [Suspect]
     Active Substance: TOPOTECAN HYDROCHLORIDE
     Dosage: FREQUENCY : DAILY;?
     Route: 048
  2. MORPHINE [Concomitant]
     Active Substance: MORPHINE
  3. OXYCODONE [Concomitant]
     Active Substance: OXYCODONE
  4. ALPRAZOLAM [Concomitant]
     Active Substance: ALPRAZOLAM
  5. METOPROLOL [Concomitant]
     Active Substance: METOPROLOL
  6. QUETIAPINE [Concomitant]
     Active Substance: QUETIAPINE
  7. ELIQUIS [Concomitant]
     Active Substance: APIXABAN

REACTIONS (1)
  - Blood sodium decreased [None]

NARRATIVE: CASE EVENT DATE: 20211229
